FAERS Safety Report 9745878 (Version 1)
Quarter: 2013Q4

REPORT INFORMATION
  Report Type: Spontaneous
  Country: US (occurrence: None)
  Receive Date: 20131206
  Receipt Date: 20131206
  Transmission Date: 20140711
  Serious: Yes (Hospitalization)
  Sender: FDA-Public Use
  Company Number: None

PATIENT
  Age: 40 Year
  Sex: Male

DRUGS (1)
  1. BRENTUXIMAB VEDOLIN [Suspect]
     Indication: HODGKIN^S DISEASE
     Dosage: 140MG OR 1.8MG/KG, EVERY 3 WEEKS, INTRAVENOUS
     Route: 042

REACTIONS (9)
  - Feeling hot [None]
  - Pruritus [None]
  - Infusion related reaction [None]
  - Rash [None]
  - Unresponsive to stimuli [None]
  - Convulsion [None]
  - Blood pressure increased [None]
  - Amnesia [None]
  - Oxygen saturation decreased [None]
